FAERS Safety Report 9663662 (Version 1)
Quarter: 2013Q4

REPORT INFORMATION
  Report Type: Report from Study
  Country: CA (occurrence: CA)
  Receive Date: 20131101
  Receipt Date: 20131101
  Transmission Date: 20140711
  Serious: Yes (Death, Other)
  Sender: FDA-Public Use
  Company Number: PHHY2013CA123034

PATIENT
  Age: 54 Year
  Sex: Male

DRUGS (4)
  1. CLOZARIL [Suspect]
     Dosage: UNK
     Dates: start: 20130710
  2. CLOZARIL [Suspect]
     Dosage: 300 MG
  3. CLOZARIL [Suspect]
     Dosage: 325 MG
  4. CLOZARIL [Suspect]
     Dosage: 350 MG

REACTIONS (3)
  - Death [Fatal]
  - Bipolar disorder [Unknown]
  - Aggression [Unknown]
